FAERS Safety Report 6770814-1 (Version None)
Quarter: 2010Q2

REPORT INFORMATION
  Report Type: 
  Country: None (occurrence: None)
  Receive Date: 20100614
  Receipt Date: 20100614
  Transmission Date: 20101027
  Serious: Yes (Other)
  Sender: FDA-Public Use
  Company Number: None

PATIENT
  Sex: Female

DRUGS (1)
  1. MIRENA [Suspect]

REACTIONS (4)
  - ABDOMINAL PAIN [None]
  - MENSTRUATION IRREGULAR [None]
  - PAIN [None]
  - POLYMENORRHOEA [None]
